FAERS Safety Report 9902852 (Version 1)
Quarter: 2014Q1

REPORT INFORMATION
  Report Type: Spontaneous
  Country: FR (occurrence: FR)
  Receive Date: 20140217
  Receipt Date: 20140217
  Transmission Date: 20141002
  Serious: Yes (Hospitalization)
  Sender: FDA-Public Use
  Company Number: PHHY2014FR017212

PATIENT
  Age: 64 Year
  Sex: Female

DRUGS (3)
  1. 5-FLUOROURACIL [Suspect]
     Indication: OROPHARYNGEAL CANCER
     Dosage: 500 MG, UNK
     Route: 042
  2. CISPLATIN [Suspect]
     Indication: OROPHARYNGEAL CANCER
     Dosage: 30 MG, UNK
     Route: 042
  3. ETOPOSIDE [Concomitant]
     Indication: OROPHARYNGEAL CANCER
     Dosage: 150 MG, UNK
     Route: 042

REACTIONS (5)
  - Deep vein thrombosis [Unknown]
  - Cerebral infarction [Unknown]
  - Hemiplegia [Unknown]
  - Visual field defect [Unknown]
  - Neurologic neglect syndrome [Unknown]
